FAERS Safety Report 16699793 (Version 2)
Quarter: 2019Q3

REPORT INFORMATION
  Report Type: Report from Study
  Country: TN (occurrence: TN)
  Receive Date: 20190813
  Receipt Date: 20190816
  Transmission Date: 20191004
  Serious: Yes (Death, Other)
  Sender: FDA-Public Use
  Company Number: TN-SHIRE-TN201925851

PATIENT

DRUGS (1)
  1. VPRIV [Suspect]
     Active Substance: VELAGLUCERASE ALFA
     Indication: GAUCHER^S DISEASE
     Dosage: 60 INTERNATIONAL UNIT/KILOGRAM, 1X/2WKS
     Route: 042
     Dates: start: 20180618

REACTIONS (1)
  - Depression [Unknown]

NARRATIVE: CASE EVENT DATE: 201907
